FAERS Safety Report 5702613-3 (Version None)
Quarter: 2008Q2

REPORT INFORMATION
  Report Type: 
  Country: None (occurrence: None)
  Receive Date: 20080411
  Receipt Date: 20080401
  Transmission Date: 20081010
  Serious: Yes (Hospitalization)
  Sender: FDA-Public Use
  Company Number: FR-ELI_LILLY_AND_COMPANY-FR200804000170

PATIENT
  Sex: Female
  Weight: 77 kg

DRUGS (17)
  1. HUMALOG [Suspect]
     Dosage: UNK, OTHER
     Route: 058
     Dates: start: 20070401, end: 20080215
  2. HUMULIN N [Suspect]
     Dosage: UNK, UNK
     Dates: start: 20030901, end: 20030101
  3. HUMALOG MIX 75/25 [Suspect]
     Dosage: UNK, UNK
     Dates: start: 20030101, end: 20031201
  4. LANTUS [Concomitant]
     Dates: start: 20031201
  5. ACTRAPID [Concomitant]
     Dates: start: 20031201, end: 20031201
  6. DAONIL [Concomitant]
     Dosage: 5 MG, 3/D
     Route: 048
     Dates: start: 20031201, end: 20070401
  7. GLUCOPHAGE [Concomitant]
     Route: 048
     Dates: end: 20030901
  8. GLUCOPHAGE [Concomitant]
     Dosage: 850 MG, 3/D
     Route: 048
     Dates: start: 20031201, end: 20070401
  9. GLUCOPHAGE [Concomitant]
     Route: 048
     Dates: start: 20071101
  10. ACTOS [Concomitant]
     Dosage: 30 MG, 3/D
     Route: 048
     Dates: start: 20031201, end: 20070401
  11. ATORVASTATIN CALCIUM [Concomitant]
  12. KARDEGIC [Concomitant]
  13. PLAVIX [Concomitant]
  14. DETENSIEL [Concomitant]
  15. TRIATEC [Concomitant]
  16. RIVOTRIL [Concomitant]
  17. TARDYFERON [Concomitant]

REACTIONS (5)
  - ECZEMA [None]
  - ERYSIPELAS [None]
  - HAEMATOMA [None]
  - HYPERSENSITIVITY [None]
  - SCRATCH [None]
